FAERS Safety Report 12130205 (Version 1)
Quarter: 2016Q1

REPORT INFORMATION
  Report Type: Spontaneous
  Country: US (occurrence: US)
  Receive Date: 20160229
  Receipt Date: 20160229
  Transmission Date: 20160526
  Serious: No
  Sender: FDA-Public Use
  Company Number: US-ACORDA-ACO_23550_2010

PATIENT
  Age: 56 Year
  Sex: Male
  Weight: 99 kg

DRUGS (3)
  1. MEDICATIONS FOR BLOOD PRESSURE [Concomitant]
     Indication: BLOOD PRESSURE MEASUREMENT
     Dosage: DF
  2. AMPYRA [Suspect]
     Active Substance: DALFAMPRIDINE
     Indication: MULTIPLE SCLEROSIS
     Dosage: 10 MG, BID
     Route: 048
     Dates: start: 20100505
  3. CLADRIBINE TRIAL FOR MS [Concomitant]
     Indication: PRODUCT USED FOR UNKNOWN INDICATION
     Dosage: DF
     Dates: start: 2008

REACTIONS (6)
  - Depression [Recovered/Resolved]
  - Dysgraphia [Unknown]
  - Fall [Unknown]
  - Gait disturbance [Unknown]
  - Eye movement disorder [Not Recovered/Not Resolved]
  - Muscular weakness [Unknown]

NARRATIVE: CASE EVENT DATE: 20100505
